FAERS Safety Report 8976580 (Version 1)
Quarter: 2012Q4

REPORT INFORMATION
  Report Type: 
  Country: US (occurrence: US)
  Receive Date: 20121220
  Receipt Date: 20121220
  Transmission Date: 20130627
  Serious: Yes (Hospitalization, Disabling)
  Sender: FDA-Public Use
  Company Number: CHPA2012US025217

PATIENT
  Age: 59 Year
  Sex: Male

DRUGS (1)
  1. COMTREX MAXIMUM STRENGTH COLD AND COUGH NON-DROWSY [Suspect]
     Indication: COUGH
     Dosage: 2 DF, PRN
     Route: 048

REACTIONS (4)
  - Atrioventricular block [Recovered/Resolved]
  - Chest pain [Recovered/Resolved]
  - Hyperhidrosis [Recovered/Resolved]
  - Palpitations [Unknown]
